FAERS Safety Report 5871601-9 (Version None)
Quarter: 2008Q3

REPORT INFORMATION
  Report Type: 
  Country: None (occurrence: None)
  Receive Date: 20080905
  Receipt Date: 20080725
  Transmission Date: 20090109
  Serious: No
  Sender: FDA-Public Use
  Company Number: A0734781A

PATIENT
  Age: 59 Year
  Sex: Female

DRUGS (12)
  1. REQUIP [Suspect]
     Indication: PARKINSON'S DISEASE
     Dosage: 2MG THREE TIMES PER DAY
     Route: 048
     Dates: start: 20080401, end: 20080601
  2. ALLOPURINOL [Concomitant]
  3. CENESTIN [Concomitant]
  4. CALCIUM [Concomitant]
  5. B-50 COMPLEX [Concomitant]
  6. SENIOR MULTIVITAMIN [Concomitant]
  7. MAGNESIUM SULFATE [Concomitant]
  8. ASPIRIN [Concomitant]
  9. COENZYME Q10 [Concomitant]
  10. GRAPE SEED EXTRACT [Concomitant]
  11. UNKNOWN MEDICATION [Concomitant]
  12. HORMONE REPLACEMENT THERAPY [Concomitant]

REACTIONS (2)
  - NAUSEA [None]
  - SOMNOLENCE [None]
